FAERS Safety Report 5121920-9 (Version None)
Quarter: 2006Q4

REPORT INFORMATION
  Report Type: 
  Country: None (occurrence: None)
  Receive Date: 20061006
  Receipt Date: 20060131
  Transmission Date: 20070319
  Serious: Yes (Death, Hospitalization, Other)
  Sender: FDA-Public Use
  Company Number: US-BRISTOL-MYERS SQUIBB COMPANY-13264213

PATIENT
  Age: 46 Year
  Sex: Male

DRUGS (1)
  1. DASATINIB [Suspect]
     Indication: LEUKAEMIA
     Dosage: INTERRUPTED 27-JAN-06 RESUMED 31-JAN-06, INTERRUPTED 20-FEB-06
     Route: 048
     Dates: start: 20051202

REACTIONS (22)
  - ACUTE GRAFT VERSUS HOST DISEASE IN INTESTINE [None]
  - BACTERIAL INFECTION [None]
  - BLOOD CULTURE POSITIVE [None]
  - CATHETER RELATED INFECTION [None]
  - CHRONIC MYELOID LEUKAEMIA [None]
  - ESCHERICHIA INFECTION [None]
  - FUNGAL INFECTION [None]
  - GASTRITIS [None]
  - GASTROINTESTINAL OEDEMA [None]
  - GRAFT VERSUS HOST DISEASE [None]
  - HAEMATOCRIT DECREASED [None]
  - HAEMOGLOBIN DECREASED [None]
  - HYPOXIA [None]
  - INFECTION [None]
  - INTESTINAL ULCER [None]
  - LOBAR PNEUMONIA [None]
  - LOWER GASTROINTESTINAL HAEMORRHAGE [None]
  - MALIGNANT NEOPLASM PROGRESSION [None]
  - MENTAL STATUS CHANGES [None]
  - SPUTUM CULTURE POSITIVE [None]
  - THROMBOCYTOPENIA [None]
  - WHITE BLOOD CELL COUNT DECREASED [None]
